APPROVED DRUG PRODUCT: DISULFIRAM
Active Ingredient: DISULFIRAM
Strength: 250MG
Dosage Form/Route: TABLET;ORAL
Application: A091681 | Product #001 | TE Code: AB
Applicant: ALVOGEN INC
Approved: Aug 8, 2013 | RLD: No | RS: No | Type: RX